FAERS Safety Report 18630520 (Version 3)
Quarter: 2021Q1

REPORT INFORMATION
  Report Type: Spontaneous
  Country: ES (occurrence: ES)
  Receive Date: 20201218
  Receipt Date: 20210118
  Transmission Date: 20210419
  Serious: Yes (Hospitalization, Other)
  Sender: FDA-Public Use
  Company Number: ES-009507513-2012ESP005381

PATIENT
  Age: 41 Year
  Sex: Female

DRUGS (2)
  1. BETAMETHASONE DIPROPIONATE. [Suspect]
     Active Substance: BETAMETHASONE DIPROPIONATE
     Indication: RASH
     Dosage: STRENGTH: 0.5 MILLIFRAM PER GRAM (MG/G), CUTANEOUS SOLUTION
     Route: 061
  2. COBICISTAT (+) DARUNAVIR [Interacting]
     Active Substance: COBICISTAT\DARUNAVIR ETHANOLATE
     Indication: HIV INFECTION
     Dosage: 1 DOSAGE FORM, Q24H

REACTIONS (4)
  - Secondary adrenocortical insufficiency [Not Recovered/Not Resolved]
  - Cushing^s syndrome [Recovering/Resolving]
  - Drug interaction [Recovering/Resolving]
  - Incorrect product administration duration [Unknown]
